FAERS Safety Report 25261548 (Version 1)
Quarter: 2025Q2

REPORT INFORMATION
  Report Type: Spontaneous
  Country: GB (occurrence: GB)
  Receive Date: 20250501
  Receipt Date: 20250501
  Transmission Date: 20250716
  Serious: Yes (Other)
  Sender: TEVA
  Company Number: GB-MHRA-TPP11143345C9512001YC1744793191943

PATIENT
  Age: 19 Year
  Sex: Female
  Weight: 101 kg

DRUGS (6)
  1. NAPROXEN [Suspect]
     Active Substance: NAPROXEN
     Indication: Ill-defined disorder
     Dosage: ONE TABLET TO BE TAKEN TWICE A DAY WHEN REQUIRE...
     Route: 065
     Dates: start: 20250318, end: 20250415
  2. EUCERIN [Concomitant]
     Active Substance: ENSULIZOLE\EUCERIN\OCTINOXATE\OCTISALATE\TITANIUM DIOXIDE\ZINC OXIDE
     Indication: Ill-defined disorder
     Route: 065
     Dates: start: 20240821
  3. ALBUTEROL [Concomitant]
     Active Substance: ALBUTEROL
     Indication: Ill-defined disorder
     Dates: start: 20171002
  4. COCODAMOL [Concomitant]
     Active Substance: ACETAMINOPHEN\CODEINE PHOSPHATE
     Indication: Ill-defined disorder
     Dosage: TAKE TWO 4 TIMES/DAY
     Route: 065
     Dates: start: 20250416
  5. IBUPROFEN [Concomitant]
     Active Substance: IBUPROFEN
     Indication: Ill-defined disorder
     Route: 065
     Dates: start: 20250416
  6. BECLOMETHASONE DIPROPIONATE\FORMOTEROL FUMARATE [Concomitant]
     Active Substance: BECLOMETHASONE DIPROPIONATE\FORMOTEROL FUMARATE
     Indication: Ill-defined disorder
     Dosage: INHALE TWO PUFFS TWICE A DAY AS DIRECTED. RESPIRATORY (INHALATION)
     Dates: start: 20240319

REACTIONS (1)
  - Chest discomfort [Recovered/Resolved]
